FAERS Safety Report 8183267-6 (Version None)
Quarter: 2012Q1

REPORT INFORMATION
  Report Type: 
  Country: None (occurrence: None)
  Receive Date: 20120201
  Receipt Date: 20110217
  Transmission Date: 20120608
  Serious: Yes (Hospitalization)
  Sender: FDA-Public Use
  Company Number: 268015USA

PATIENT
  Sex: Female

DRUGS (1)
  1. PROPOXYPHENE NAPSYLATE W/ACETAMINOPHENE 100MG/ 650MG, TABLETS (PROPOXY [Suspect]
     Dosage: 650 MG/100 MG

REACTIONS (2)
  - HEADACHE [None]
  - DIZZINESS [None]
